FAERS Safety Report 8620755-X (Version None)
Quarter: 2012Q3

REPORT INFORMATION
  Report Type: 
  Country: None (occurrence: None)
  Receive Date: 20120824
  Receipt Date: 20120814
  Transmission Date: 20120928
  Serious: Yes (Other)
  Sender: FDA-Public Use
  Company Number: SE-BRISTOL-MYERS SQUIBB COMPANY-16855983

PATIENT
  Age: 82 Year
  Sex: Female

DRUGS (2)
  1. ORENCIA [Suspect]
  2. METHOTREXATE [Suspect]

REACTIONS (2)
  - DIVERTICULITIS [None]
  - LARGE INTESTINAL ULCER HAEMORRHAGE [None]
